FAERS Safety Report 20679911 (Version 1)
Quarter: 2022Q2

REPORT INFORMATION
  Report Type: Spontaneous
  Country: US (occurrence: US)
  Receive Date: 20220406
  Receipt Date: 20220406
  Transmission Date: 20220721
  Serious: No
  Sender: FDA-Public Use
  Company Number: US-TAKEDA-2022TUS022633

PATIENT
  Sex: Female
  Weight: 118 kg

DRUGS (2)
  1. TRINTELLIX [Suspect]
     Active Substance: VORTIOXETINE HYDROBROMIDE
     Indication: Anxiety
     Dosage: 5 MILLIGRAM, BID
     Route: 065
  2. ALPRAZOLAM [Concomitant]
     Active Substance: ALPRAZOLAM
     Dosage: UNK
     Route: 065

REACTIONS (11)
  - Off label use [Unknown]
  - Feeling abnormal [Unknown]
  - Confusional state [Unknown]
  - Disorientation [Unknown]
  - Asthenia [Unknown]
  - Insomnia [Unknown]
  - Disturbance in attention [Unknown]
  - Pain [Unknown]
  - Frustration tolerance decreased [Unknown]
  - Hypophagia [Unknown]
  - Weight increased [Unknown]
